FAERS Safety Report 4756686-5 (Version None)
Quarter: 2005Q3

REPORT INFORMATION
  Report Type: 
  Country: None (occurrence: None)
  Receive Date: 20050830
  Receipt Date: 20050818
  Transmission Date: 20060218
  Serious: Yes (Other)
  Sender: FDA-Public Use
  Company Number: DE-GLAXOSMITHKLINE-D0047325A

PATIENT
  Sex: Female

DRUGS (3)
  1. IMIGRAN [Suspect]
     Indication: MIGRAINE
     Route: 065
     Dates: end: 20020101
  2. RELPAX [Suspect]
     Indication: MIGRAINE
     Route: 048
     Dates: end: 20020101
  3. ALMOGRAN [Suspect]
     Indication: MIGRAINE
     Route: 048
     Dates: start: 20020101

REACTIONS (1)
  - RETINAL DETACHMENT [None]
